FAERS Safety Report 18054299 (Version 1)
Quarter: 2020Q3

REPORT INFORMATION
  Report Type: Spontaneous
  Country: US (occurrence: US)
  Receive Date: 20200721
  Receipt Date: 20200721
  Transmission Date: 20201103
  Serious: Yes (Other)
  Sender: FDA-Public Use
  Company Number: None

PATIENT
  Age: 47 Year
  Sex: Male
  Weight: 92 kg

DRUGS (2)
  1. VANCOMYCIN [Suspect]
     Active Substance: VANCOMYCIN
     Indication: INFECTION
     Dosage: ?          OTHER ROUTE:IV?
     Dates: start: 20200227, end: 20200227
  2. VANCOMYCIN [Suspect]
     Active Substance: VANCOMYCIN
     Indication: SEPSIS
     Dosage: ?          OTHER ROUTE:IV?
     Dates: start: 20200227, end: 20200227

REACTIONS (2)
  - Drug specific antibody present [None]
  - Thrombocytopenia [None]

NARRATIVE: CASE EVENT DATE: 20200228
